FAERS Safety Report 16180542 (Version 2)
Quarter: 2019Q2

REPORT INFORMATION
  Report Type: Spontaneous
  Country: FR (occurrence: FR)
  Receive Date: 20190410
  Receipt Date: 20190415
  Transmission Date: 20190711
  Serious: Yes (Death, Hospitalization)
  Sender: FDA-Public Use
  Company Number: FR-PFIZER INC-2019149964

PATIENT
  Age: 52 Year
  Sex: Male
  Weight: 79 kg

DRUGS (4)
  1. CORDARONE [Suspect]
     Active Substance: AMIODARONE HYDROCHLORIDE
     Dosage: 200 MG, DAILY
     Route: 048
  2. DAFALGAN [Interacting]
     Active Substance: ACETAMINOPHEN
     Dosage: 3 G, DAILY
     Route: 048
  3. IXPRIM [Interacting]
     Active Substance: ACETAMINOPHEN\TRAMADOL HYDROCHLORIDE
     Dosage: 3 DF, DAILY
     Route: 048
  4. COUMADIN [Interacting]
     Active Substance: WARFARIN SODIUM
     Indication: MITRAL VALVE DISEASE
     Dosage: 7 MG, UNK
     Route: 048

REACTIONS (2)
  - Drug interaction [Fatal]
  - Haemoptysis [Fatal]

NARRATIVE: CASE EVENT DATE: 20180206
